FAERS Safety Report 17351968 (Version 1)
Quarter: 2020Q1

REPORT INFORMATION
  Report Type: Spontaneous
  Country: JP (occurrence: JP)
  Receive Date: 20200130
  Receipt Date: 20200130
  Transmission Date: 20200409
  Serious: Yes (Death)
  Sender: FDA-Public Use
  Company Number: JP-MTPC-MTPC2019-0080543

PATIENT

DRUGS (7)
  1. ROZEREM [Concomitant]
     Active Substance: RAMELTEON
     Dosage: 1 DOSAGE FORM, QD
     Route: 048
  2. MUCODYNE [Concomitant]
     Active Substance: CARBOCYSTEINE
     Dosage: 1 DOSAGE FORM, TID
     Route: 048
  3. METHYCOBAL [Concomitant]
     Active Substance: METHYLCOBALAMIN
     Dosage: 1 DOSAGE FORM, TID
     Route: 048
  4. RADICUT BAG FOR I.V. INFUSION 30MG [Suspect]
     Active Substance: EDARAVONE
     Indication: AMYOTROPHIC LATERAL SCLEROSIS
     Dosage: 60 MILLIGRAM, QD
     Route: 041
     Dates: start: 20191021, end: 20191101
  5. VOGLIBOSE [Concomitant]
     Active Substance: VOGLIBOSE
     Dosage: 1 DOSAGE FORM, TID
     Route: 048
  6. RILUTEK [Concomitant]
     Active Substance: RILUZOLE
     Dosage: 1 DOSAGE FORM, BID
     Route: 048
  7. TERAMURO [Concomitant]
     Dosage: 1 DOSAGE FORM, QD
     Route: 048

REACTIONS (1)
  - Respiratory failure [Fatal]

NARRATIVE: CASE EVENT DATE: 20191101
